FAERS Safety Report 11256502 (Version 1)
Quarter: 2015Q3

REPORT INFORMATION
  Report Type: Spontaneous
  Country: US (occurrence: US)
  Receive Date: 20150709
  Receipt Date: 20150709
  Transmission Date: 20151125
  Serious: No
  Sender: FDA-Public Use
  Company Number: US-PURDUE-USA-2014-0116769

PATIENT
  Sex: Male

DRUGS (6)
  1. BUTRANS [Suspect]
     Active Substance: BUPRENORPHINE
     Dosage: 10 UNK, UNK
     Route: 062
     Dates: start: 2013
  2. BUTRANS [Suspect]
     Active Substance: BUPRENORPHINE
     Dosage: 20 UNK, UNK
     Route: 062
     Dates: start: 201405, end: 201406
  3. BUTRANS [Suspect]
     Active Substance: BUPRENORPHINE
     Dosage: 15 UNK, UNK
     Route: 062
     Dates: start: 201404, end: 201405
  4. BUTRANS [Suspect]
     Active Substance: BUPRENORPHINE
     Indication: BACK PAIN
     Dosage: 20 MCG/HR, WEEKLY
     Route: 062
     Dates: start: 201407
  5. BUTRANS [Suspect]
     Active Substance: BUPRENORPHINE
     Dosage: 5 MCG, UNK
     Route: 062
  6. BUTRANS [Suspect]
     Active Substance: BUPRENORPHINE
     Dosage: 20 MCG/HR, UNK
     Route: 062
     Dates: start: 201406, end: 201407

REACTIONS (7)
  - Application site pruritus [Unknown]
  - Hyperhidrosis [Unknown]
  - Application site discolouration [Recovering/Resolving]
  - Inadequate analgesia [Unknown]
  - Drug ineffective [Unknown]
  - Application site erythema [Not Recovered/Not Resolved]
  - Product adhesion issue [Unknown]
